FAERS Safety Report 12100606 (Version 1)
Quarter: 2016Q1

REPORT INFORMATION
  Report Type: Spontaneous
  Country: US (occurrence: US)
  Receive Date: 20160222
  Receipt Date: 20160222
  Transmission Date: 20160526
  Serious: Yes (Hospitalization, Other)
  Sender: FDA-Public Use
  Company Number: US-BAYER-2016-030194

PATIENT
  Age: 73 Year
  Sex: Female
  Weight: 102 kg

DRUGS (7)
  1. ACENOCOUMAROL [Suspect]
     Active Substance: ACENOCOUMAROL
     Indication: ATRIAL FIBRILLATION
     Dosage: 1 MG, QD
     Route: 048
     Dates: start: 20020208, end: 20160116
  2. BAYER LOW DOSE [Suspect]
     Active Substance: ASPIRIN
     Indication: JOINT STIFFNESS
     Dosage: 80 MG, QD
     Route: 048
     Dates: start: 20110519, end: 20160116
  3. BUMETANIDE. [Concomitant]
     Active Substance: BUMETANIDE
     Indication: HYPERTENSION
     Dosage: 1 MG, UNK
     Dates: start: 20110427
  4. EZETIMIBE. [Concomitant]
     Active Substance: EZETIMIBE
     Indication: HYPERCHOLESTEROLAEMIA
     Dosage: 10 MG, UNK
     Dates: start: 20130610
  5. VERAPAMIL [Concomitant]
     Active Substance: VERAPAMIL HYDROCHLORIDE
     Indication: ATRIAL FIBRILLATION
     Dosage: 120 MG, UNK
     Dates: start: 20110516
  6. SPIRONOLACTON [Concomitant]
     Active Substance: SPIRONOLACTONE
     Indication: HYPERTENSION
     Dosage: 25 MG, UNK
     Dates: start: 20110427
  7. ACENOCOUMAROL [Suspect]
     Active Substance: ACENOCOUMAROL
     Indication: ATRIAL FIBRILLATION
     Dosage: UNK
     Dates: start: 20160119

REACTIONS (6)
  - Vomiting [Recovered/Resolved]
  - Haematemesis [Recovered/Resolved]
  - Vaginal haemorrhage [Not Recovered/Not Resolved]
  - Gastritis haemorrhagic [Recovered/Resolved]
  - Dizziness [Recovered/Resolved]
  - Melaena [Recovered/Resolved]

NARRATIVE: CASE EVENT DATE: 201601
